FAERS Safety Report 11371381 (Version 2)
Quarter: 2015Q3

REPORT INFORMATION
  Report Type: Report from Study
  Country: US (occurrence: US)
  Receive Date: 20150812
  Receipt Date: 20150828
  Transmission Date: 20151125
  Serious: Yes (Hospitalization, Other)
  Sender: FDA-Public Use
  Company Number: US-SA-2015SA027342

PATIENT
  Age: 66 Year
  Sex: Female

DRUGS (2)
  1. AUBAGIO [Suspect]
     Active Substance: TERIFLUNOMIDE
     Indication: MULTIPLE SCLEROSIS
     Route: 048
     Dates: start: 20150216, end: 20150227
  2. AUBAGIO [Suspect]
     Active Substance: TERIFLUNOMIDE
     Indication: MULTIPLE SCLEROSIS
     Route: 048
     Dates: start: 201502

REACTIONS (10)
  - Drug ineffective [Unknown]
  - Urinary tract infection [Unknown]
  - Pain [Unknown]
  - Cystitis [Unknown]
  - Cardiac failure congestive [Unknown]
  - Swelling [Unknown]
  - Peripheral swelling [Unknown]
  - Neuropathy peripheral [Unknown]
  - Dizziness [Unknown]
  - Burning sensation [Unknown]

NARRATIVE: CASE EVENT DATE: 2015
